FAERS Safety Report 19036563 (Version 1)
Quarter: 2021Q1

REPORT INFORMATION
  Report Type: Spontaneous
  Country: US (occurrence: US)
  Receive Date: 20210319
  Receipt Date: 20210319
  Transmission Date: 20210420
  Serious: Yes (Hospitalization)
  Sender: FDA-Public Use
  Company Number: None

PATIENT
  Sex: Female

DRUGS (2)
  1. CEFTRIAXONE. [Concomitant]
     Active Substance: CEFTRIAXONE
  2. DAPTOMYCIN 500 MG FRESENIUS KABI USA [Suspect]
     Active Substance: DAPTOMYCIN
     Indication: BACTERAEMIA
     Dosage: ?          OTHER ROUTE:IV?
     Dates: start: 20210216

REACTIONS (2)
  - Rash [None]
  - Drug reaction with eosinophilia and systemic symptoms [None]
